FAERS Safety Report 10142733 (Version 1)
Quarter: 2014Q2

REPORT INFORMATION
  Report Type: Report from Study
  Country: CA (occurrence: CA)
  Receive Date: 20140430
  Receipt Date: 20140430
  Transmission Date: 20141212
  Serious: Yes (Other)
  Sender: FDA-Public Use
  Company Number: CA-ROCHE-1390717

PATIENT
  Sex: Male

DRUGS (7)
  1. RITUXAN [Suspect]
     Indication: RHEUMATOID ARTHRITIS
     Dosage: FREQUENCY: DAY 1 AND DAY 15?LAST DOSE: 13/JUN/2013
     Route: 042
     Dates: start: 20100810
  2. DIPHENHYDRAMINE HCL [Concomitant]
     Route: 048
  3. ACETAMINOPHEN [Concomitant]
     Route: 048
  4. EFFEXOR [Concomitant]
     Route: 065
  5. NEXIUM [Concomitant]
     Route: 065
  6. PREDNISOLONE [Concomitant]
     Dosage: X 2 AS DIRECTED
     Route: 042
  7. PREDNISONE [Concomitant]
     Route: 065

REACTIONS (3)
  - Sleep apnoea syndrome [Not Recovered/Not Resolved]
  - Cataract [Not Recovered/Not Resolved]
  - Eye irritation [Unknown]
